FAERS Safety Report 17766844 (Version 1)
Quarter: 2020Q2

REPORT INFORMATION
  Report Type: Spontaneous
  Country: US (occurrence: US)
  Receive Date: 20200511
  Receipt Date: 20200511
  Transmission Date: 20200714
  Serious: Yes (Hospitalization, Other)
  Sender: FDA-Public Use
  Company Number: US-TEVA-2020-US-1233550

PATIENT
  Sex: Male

DRUGS (2)
  1. AMIODARONE [Suspect]
     Active Substance: AMIODARONE
     Route: 065
  2. ZYDUS BUMETANIDE [Suspect]
     Active Substance: BUMETANIDE
     Route: 065

REACTIONS (12)
  - Dyspnoea [Unknown]
  - Abdominal distension [Unknown]
  - Gallbladder disorder [Unknown]
  - Sunburn [Unknown]
  - Asthenia [Unknown]
  - Cardiac failure congestive [Unknown]
  - Blood potassium decreased [Unknown]
  - Cerebrovascular accident [Unknown]
  - Joint swelling [Unknown]
  - Drug ineffective [Unknown]
  - Peripheral swelling [Unknown]
  - Skin discolouration [Unknown]
